FAERS Safety Report 8412995-X (Version None)
Quarter: 2012Q2

REPORT INFORMATION
  Report Type: 
  Country: None (occurrence: None)
  Receive Date: 20120323
  Receipt Date: 20110330
  Transmission Date: 20120825
  Serious: Yes (Hospitalization, Disabling, Other)
  Sender: FDA-Public Use
  Company Number: 163-21880-11021059

PATIENT
  Age: 77 Year
  Sex: Male
  Weight: 100 kg

DRUGS (4)
  1. REVLIMID [Suspect]
     Indication: MULTIPLE MYELOMA
     Dosage: 25 MG, DAILY FOR 21 DAYS EVERY 28 DAYS, PO
     Route: 048
     Dates: start: 20081021
  2. LASIX [Concomitant]
  3. DECADRON [Concomitant]
  4. SEREVENT [Concomitant]

REACTIONS (2)
  - PULMONARY OEDEMA [None]
  - CARDIAC FAILURE [None]
